FAERS Safety Report 23734317 (Version 2)
Quarter: 2024Q2

REPORT INFORMATION
  Report Type: Report from Study
  Country: US (occurrence: US)
  Receive Date: 20240412
  Receipt Date: 20240509
  Transmission Date: 20240716
  Serious: No
  Sender: FDA-Public Use
  Company Number: US-SA-SAC20240409000692

PATIENT
  Age: 44 Year
  Sex: Female

DRUGS (1)
  1. DUPILUMAB [Suspect]
     Active Substance: DUPILUMAB
     Indication: Nasal polyps
     Dosage: 300 MG, QOW
     Route: 058

REACTIONS (4)
  - Dry mouth [Unknown]
  - Tinnitus [Unknown]
  - Product dose omission in error [Unknown]
  - Product storage error [Unknown]

NARRATIVE: CASE EVENT DATE: 20240329
